FAERS Safety Report 24370621 (Version 1)
Quarter: 2024Q3

REPORT INFORMATION
  Report Type: Spontaneous
  Country: US (occurrence: US)
  Receive Date: 20240927
  Receipt Date: 20240927
  Transmission Date: 20241017
  Serious: No
  Sender: ROCHE
  Company Number: US-ROCHE-10000091965

PATIENT
  Age: 69 Year
  Sex: Female
  Weight: 70.67 kg

DRUGS (4)
  1. CELLCEPT [Suspect]
     Active Substance: MYCOPHENOLATE MOFETIL
     Indication: Pneumonitis
     Dosage: LAST DOSE ON 24-SEP-2024. PATIENT TAKES 2 TABLETS EVERYDAY
     Route: 048
     Dates: start: 20240908
  2. CELLCEPT [Suspect]
     Active Substance: MYCOPHENOLATE MOFETIL
     Indication: Interstitial lung disease
  3. PREDNISONE [Suspect]
     Active Substance: PREDNISONE
     Indication: Product used for unknown indication
     Dosage: LAST DOSE 24-AUG-2024
     Route: 065
     Dates: start: 20240526, end: 20240824
  4. REMICADE [Concomitant]
     Active Substance: INFLIXIMAB
     Indication: Rheumatoid arthritis
     Dosage: LAST DOSE -AUG-2024
     Route: 042
     Dates: start: 202402

REACTIONS (2)
  - Weight increased [Not Recovered/Not Resolved]
  - Off label use [Unknown]

NARRATIVE: CASE EVENT DATE: 20240908
